FAERS Safety Report 5483300-6 (Version None)
Quarter: 2007Q4

REPORT INFORMATION
  Report Type: 
  Country: None (occurrence: None)
  Receive Date: 20071012
  Receipt Date: 20071004
  Transmission Date: 20080405
  Serious: Yes (Other)
  Sender: FDA-Public Use
  Company Number: PHEH2007US13212

PATIENT
  Sex: Male

DRUGS (2)
  1. LIPITOR [Concomitant]
     Dates: start: 19990101
  2. DIOVAN [Suspect]
     Indication: HYPERTENSION
     Dosage: 160 MG, UNK
     Dates: start: 19990101

REACTIONS (1)
  - BREAST MASS [None]
